FAERS Safety Report 14376059 (Version 1)
Quarter: 2018Q1

REPORT INFORMATION
  Report Type: Spontaneous
  Country: US (occurrence: US)
  Receive Date: 20180110
  Receipt Date: 20180110
  Transmission Date: 20180509
  Serious: No
  Sender: FDA-Public Use
  Company Number: None

PATIENT
  Sex: Female

DRUGS (1)
  1. FORTEO [Suspect]
     Active Substance: TERIPARATIDE
     Indication: OSTEOPOROSIS
     Dosage: OCT2017-INTERRUPTED
     Route: 058
     Dates: start: 201710

REACTIONS (2)
  - Therapy cessation [None]
  - Nuclear magnetic resonance imaging breast abnormal [None]
